FAERS Safety Report 18320832 (Version 2)
Quarter: 2020Q4

REPORT INFORMATION
  Report Type: Report from Study
  Country: US (occurrence: US)
  Receive Date: 20200928
  Receipt Date: 20201006
  Transmission Date: 20210113
  Serious: Yes (Death, Hospitalization)
  Sender: FDA-Public Use
  Company Number: US-JNJFOC-A-US2020-208690

PATIENT
  Age: 61 Year
  Sex: Male

DRUGS (2)
  1. PEROXIDE [Concomitant]
     Active Substance: HYDROGEN PEROXIDE
  2. OPSUMIT [Suspect]
     Active Substance: MACITENTAN
     Indication: PULMONARY ARTERIAL HYPERTENSION
     Route: 048

REACTIONS (5)
  - Cardiac failure congestive [Unknown]
  - Death [Fatal]
  - Product dose omission issue [Recovered/Resolved]
  - Skin weeping [Unknown]
  - Swelling [Unknown]

NARRATIVE: CASE EVENT DATE: 20200811
